FAERS Safety Report 10014428 (Version 2)
Quarter: 2014Q2

REPORT INFORMATION
  Report Type: Spontaneous
  Country: CA (occurrence: CA)
  Receive Date: 20140317
  Receipt Date: 20140405
  Transmission Date: 20141212
  Serious: Yes (Hospitalization, Other)
  Sender: FDA-Public Use
  Company Number: CA-AMGEN-CANSP2014017575

PATIENT
  Age: 75 Year
  Sex: Female
  Weight: 79.8 kg

DRUGS (14)
  1. PROLIA [Suspect]
     Indication: OSTEOPOROSIS POSTMENOPAUSAL
     Dosage: 60 MG, Q6MO
     Route: 065
     Dates: start: 201208
  2. PROLIA [Suspect]
     Indication: OSTEOPENIA
  3. XARELTO [Concomitant]
     Dosage: 20 MG, QD
     Route: 065
  4. DALTEPARIN [Concomitant]
  5. PARIET [Concomitant]
  6. RIVAROXABAN [Concomitant]
     Dosage: 20 MG, UNK
  7. VITAMIN D                          /00107901/ [Concomitant]
  8. LORATADINE [Concomitant]
  9. LIPITOR [Concomitant]
  10. BISOPROLOL [Concomitant]
  11. COLACE [Concomitant]
  12. LASIX                              /00032601/ [Concomitant]
  13. OLMETEC [Concomitant]
  14. CLONIDINE [Concomitant]

REACTIONS (9)
  - Coagulopathy [Recovering/Resolving]
  - Hypertension [Recovering/Resolving]
  - Pulmonary embolism [Unknown]
  - Renal failure acute [Unknown]
  - Coarctation of the aorta [Unknown]
  - Abdominal wall haematoma [Unknown]
  - Peripheral swelling [Unknown]
  - Dizziness [Unknown]
  - Fatigue [Unknown]
